FAERS Safety Report 16369121 (Version 1)
Quarter: 2019Q2

REPORT INFORMATION
  Report Type: Spontaneous
  Country: FR (occurrence: FR)
  Receive Date: 20190529
  Receipt Date: 20190529
  Transmission Date: 20190711
  Serious: Yes (Hospitalization)
  Sender: FDA-Public Use
  Company Number: FR-009507513-1905FRA009844

PATIENT
  Age: 88 Year
  Sex: Male
  Weight: 83 kg

DRUGS (8)
  1. COLCHIMAX (COLCHICINE (+) OPIUM, POWDERED (+) TIEMONIUM METHYLSULFATE) [Interacting]
     Active Substance: COLCHICINE\OPIUM\TIEMONIUM METHYLSULFATE
     Indication: PERICARDITIS
     Dosage: 1 MILLIGRAM, QD
     Route: 048
     Dates: start: 20190309, end: 20190316
  2. FINASTERIDE. [Concomitant]
     Active Substance: FINASTERIDE
     Dosage: UNK
     Route: 048
  3. FLUOXETINE [Concomitant]
     Active Substance: FLUOXETINE HYDROCHLORIDE
     Dosage: 0.5 DOSAGE FORM, QD
     Route: 048
  4. FUROSEMIDE. [Concomitant]
     Active Substance: FUROSEMIDE
     Indication: OEDEMA
     Dosage: UNK
     Route: 048
     Dates: start: 20190309, end: 20190312
  5. PREVISCAN [Concomitant]
     Dosage: 0.5 DOSAGE FORM, QD
     Route: 048
  6. SIMVASTATIN. [Suspect]
     Active Substance: SIMVASTATIN
     Indication: MYOCARDIAL ISCHAEMIA
     Dosage: 40 MILLIGRAM, QD
     Route: 048
     Dates: end: 20190320
  7. ZOPICLONE [Concomitant]
     Active Substance: ZOPICLONE
     Dosage: 0.5 DOSAGE FORM, QD
     Route: 048
  8. AMIODARONE HYDROCHLORIDE. [Concomitant]
     Active Substance: AMIODARONE HYDROCHLORIDE
     Indication: ATRIAL FIBRILLATION
     Dosage: 100 MILLIGRAM, QD
     Route: 048

REACTIONS (3)
  - Drug interaction [Recovered/Resolved]
  - Blood creatine phosphokinase increased [Recovered/Resolved]
  - Hepatocellular injury [Recovered/Resolved]

NARRATIVE: CASE EVENT DATE: 201903
